FAERS Safety Report 6376735-0 (Version None)
Quarter: 2009Q3

REPORT INFORMATION
  Report Type: 
  Country: None (occurrence: None)
  Receive Date: 20090924
  Receipt Date: 20090924
  Transmission Date: 20100115
  Serious: Yes (Other)
  Sender: FDA-Public Use
  Company Number: None

PATIENT
  Age: 14 Year
  Sex: Male

DRUGS (1)
  1. VYVANSE [Suspect]
     Dosage: 70 MG CAP 2X A DAY EVERYDAY ORAL
     Route: 048
     Dates: start: 20090216

REACTIONS (5)
  - ABNORMAL BEHAVIOUR [None]
  - AFFECTIVE DISORDER [None]
  - SEXUAL ABUSE [None]
  - THINKING ABNORMAL [None]
  - VISUAL IMPAIRMENT [None]
